FAERS Safety Report 11410281 (Version 1)
Quarter: 2015Q3

REPORT INFORMATION
  Report Type: Spontaneous
  Country: US (occurrence: None)
  Receive Date: 20150820
  Receipt Date: 20150820
  Transmission Date: 20151125
  Serious: Yes (Hospitalization)
  Sender: FDA-Public Use
  Company Number: None

PATIENT
  Age: 61 Year
  Sex: Male
  Weight: 86 kg

DRUGS (1)
  1. NIVOLUMAB [Suspect]
     Active Substance: NIVOLUMAB
     Indication: LUNG NEOPLASM MALIGNANT
     Route: 042
     Dates: start: 20150605, end: 20150703

REACTIONS (6)
  - Pneumonitis [None]
  - Productive cough [None]
  - Dyspnoea [None]
  - Stridor [None]
  - Wheezing [None]
  - Hypersensitivity [None]

NARRATIVE: CASE EVENT DATE: 20150707
